FAERS Safety Report 7298640-8 (Version None)
Quarter: 2011Q1

REPORT INFORMATION
  Report Type: 
  Country: None (occurrence: None)
  Receive Date: 20110217
  Receipt Date: 20110209
  Transmission Date: 20110831
  Serious: Yes (Hospitalization)
  Sender: FDA-Public Use
  Company Number: US-JNJFOC-20110201121

PATIENT
  Age: 40 Year
  Sex: Male
  Weight: 88.45 kg

DRUGS (4)
  1. SUDAFED 24 HOUR [Suspect]
     Indication: MULTIPLE ALLERGIES
     Route: 048
  2. SUDAFED 24 HOUR [Suspect]
     Indication: NASOPHARYNGITIS
     Route: 048
  3. AFRIN [Concomitant]
     Indication: NASAL DISORDER
  4. LISINOPRIL [Concomitant]
     Indication: HYPERTENSION

REACTIONS (2)
  - DRUG SCREEN POSITIVE [None]
  - ROAD TRAFFIC ACCIDENT [None]
